FAERS Safety Report 15453065 (Version 2)
Quarter: 2018Q4

REPORT INFORMATION
  Report Type: Report from Study
  Country: US (occurrence: US)
  Receive Date: 20181001
  Receipt Date: 20181109
  Transmission Date: 20190204
  Serious: Yes (Hospitalization, Other)
  Sender: FDA-Public Use
  Company Number: US-JNJFOC-20180934662

PATIENT
  Sex: Male

DRUGS (1)
  1. STELARA [Suspect]
     Active Substance: USTEKINUMAB
     Indication: PRODUCT USED FOR UNKNOWN INDICATION
     Route: 058

REACTIONS (11)
  - Pneumonia [Unknown]
  - Condition aggravated [Unknown]
  - Staphylococcal infection [Unknown]
  - Delirium [Unknown]
  - Large intestinal haemorrhage [Unknown]
  - Urinary tract infection [Unknown]
  - Diarrhoea [Unknown]
  - Dementia [Unknown]
  - Cholelithiasis [Unknown]
  - Weight decreased [Unknown]
  - Confusional state [Unknown]
